FAERS Safety Report 6126507-7 (Version None)
Quarter: 2009Q1

REPORT INFORMATION
  Report Type: 
  Country: None (occurrence: None)
  Receive Date: 20090320
  Receipt Date: 20090312
  Transmission Date: 20090719
  Serious: Yes (Other)
  Sender: FDA-Public Use
  Company Number: BR-PFIZER INC-2009183637

PATIENT

DRUGS (5)
  1. ATORVASTATIN CALCIUM [Suspect]
     Indication: BLOOD CHOLESTEROL INCREASED
     Dosage: UNK
     Route: 048
  2. DIOVAN [Concomitant]
     Dosage: UNK
  3. AAS [Concomitant]
     Dosage: UNK
  4. CILOSTAZOL [Concomitant]
     Dosage: UNK
  5. MONOCORDIL [Concomitant]
     Dosage: UNK

REACTIONS (2)
  - ABASIA [None]
  - PAIN IN EXTREMITY [None]
